FAERS Safety Report 8214060-3 (Version None)
Quarter: 2012Q1

REPORT INFORMATION
  Report Type: 
  Country: None (occurrence: None)
  Receive Date: 20120314
  Receipt Date: 20120314
  Transmission Date: 20120608
  Serious: Yes (Hospitalization)
  Sender: FDA-Public Use
  Company Number: None

PATIENT
  Age: 50 Year
  Sex: Male
  Weight: 83.9 kg

DRUGS (11)
  1. AUGMENTIN '125' [Concomitant]
  2. GLIMEPIRIDE [Concomitant]
  3. PRAVASTATIN [Concomitant]
  4. ALTEPLASE [Suspect]
     Indication: PULMONARY EMBOLISM
     Dosage: RECENT
  5. SPIRIVA [Concomitant]
  6. AMIODARONE HYDROCHLORIDE [Concomitant]
  7. CARVEDILOL [Concomitant]
  8. ASPIRIN [Concomitant]
  9. REGLAN [Concomitant]
  10. ENOXAPARIN [Suspect]
     Indication: PULMONARY EMBOLISM
     Dosage: 80MG SQ BID RECENT
     Route: 058
  11. SYMBICORT [Concomitant]

REACTIONS (3)
  - TRAUMATIC LUNG INJURY [None]
  - TRAUMATIC HAEMORRHAGE [None]
  - INJURY ASSOCIATED WITH DEVICE [None]
